FAERS Safety Report 24759525 (Version 1)
Quarter: 2024Q4

REPORT INFORMATION
  Report Type: Report from Study
  Country: US (occurrence: US)
  Receive Date: 20241220
  Receipt Date: 20241220
  Transmission Date: 20250115
  Serious: Yes (Death, Other)
  Sender: ACADIA PHARMACEUTICALS
  Company Number: US-ACADIA PHARMACEUTICALS INC.-ACA-2024-PIM-008294

PATIENT
  Age: 77 Year
  Sex: Female

DRUGS (13)
  1. NUPLAZID [Suspect]
     Active Substance: PIMAVANSERIN TARTRATE
     Indication: Parkinson^s disease
     Dosage: 34 MILLIGRAM, QD
     Route: 048
     Dates: start: 202303
  2. BUMETANIDE [Concomitant]
     Active Substance: BUMETANIDE
  3. DULOXETINE [Concomitant]
     Active Substance: DULOXETINE
  4. ELIQUIS [Concomitant]
     Active Substance: APIXABAN
  5. CALCIUM [Concomitant]
     Active Substance: CALCIUM
  6. ANASTROZOLE [Concomitant]
     Active Substance: ANASTROZOLE
  7. ATORVASTATIN [Concomitant]
     Active Substance: ATORVASTATIN
  8. CLOPIDOGREL [Concomitant]
     Active Substance: CLOPIDOGREL BISULFATE
  9. LOSARTAN [Concomitant]
     Active Substance: LOSARTAN
  10. CARBIDOPA [Concomitant]
     Active Substance: CARBIDOPA
  11. METOPROLOL [Concomitant]
     Active Substance: METOPROLOL
  12. SPIRONOLACTONE [Concomitant]
     Active Substance: SPIRONOLACTONE
  13. VITAMIN D2 [Concomitant]
     Active Substance: ERGOCALCIFEROL

REACTIONS (1)
  - Death [Fatal]

NARRATIVE: CASE EVENT DATE: 20241206
